FAERS Safety Report 19967529 (Version 2)
Quarter: 2021Q4

REPORT INFORMATION
  Report Type: Spontaneous
  Country: GB (occurrence: GB)
  Receive Date: 20211019
  Receipt Date: 20211020
  Transmission Date: 20220303
  Serious: Yes (Other)
  Sender: FDA-Public Use
  Company Number: None

PATIENT
  Age: 64 Year
  Sex: Male
  Weight: 98 kg

DRUGS (3)
  1. MOMETASONE FUROATE [Suspect]
     Active Substance: MOMETASONE FUROATE
     Indication: Ill-defined disorder
     Dosage: 2 DF, QD
     Route: 061
     Dates: start: 20210209, end: 20210210
  2. HYDROCORTISONE\MICONAZOLE NITRATE [Concomitant]
     Active Substance: HYDROCORTISONE\MICONAZOLE NITRATE
     Indication: Ill-defined disorder
     Dosage: UNK
  3. HYDROCORTISONE\MICONAZOLE NITRATE [Concomitant]
     Active Substance: HYDROCORTISONE\MICONAZOLE NITRATE
     Indication: Ill-defined disorder
     Dosage: UNK

REACTIONS (2)
  - Testicular pain [Recovered/Resolved]
  - Testicular disorder [Unknown]

NARRATIVE: CASE EVENT DATE: 20210209
